FAERS Safety Report 8002460-6 (Version None)
Quarter: 2011Q4

REPORT INFORMATION
  Report Type: 
  Country: None (occurrence: None)
  Receive Date: 20111222
  Receipt Date: 20111212
  Transmission Date: 20120403
  Serious: Yes (Hospitalization, Other)
  Sender: FDA-Public Use
  Company Number: US-ABBOTT-11P-163-0884014-00

PATIENT
  Sex: Female
  Weight: 90.8 kg

DRUGS (16)
  1. HUMIRA [Suspect]
     Route: 058
  2. HUMIRA [Suspect]
  3. HUMIRA [Suspect]
     Indication: CROHN'S DISEASE
     Route: 058
     Dates: start: 20040101, end: 20041101
  4. TRAZODONE HCL [Concomitant]
     Indication: PRODUCT USED FOR UNKNOWN INDICATION
     Dosage: 50MG 2 @ HS
  5. HUMIRA [Suspect]
     Route: 058
     Dates: end: 20071001
  6. HUMIRA [Suspect]
     Route: 058
     Dates: start: 20050101
  7. PROMETHAZINE [Concomitant]
     Indication: PRODUCT USED FOR UNKNOWN INDICATION
     Dosage: 1 AS NEEDED
  8. OXYCODONE HCL [Concomitant]
     Indication: PRODUCT USED FOR UNKNOWN INDICATION
     Dosage: 5MG 1 Q6H
  9. CRESTOR [Concomitant]
     Indication: PRODUCT USED FOR UNKNOWN INDICATION
     Dosage: 10MG @ HS
  10. NEXIUM [Concomitant]
     Indication: PRODUCT USED FOR UNKNOWN INDICATION
  11. WARFARIN SODIUM [Concomitant]
     Indication: PRODUCT USED FOR UNKNOWN INDICATION
     Dosage: 3MG DAILY
  12. ALPRAZOLAM [Concomitant]
     Indication: PRODUCT USED FOR UNKNOWN INDICATION
     Dosage: 3 TIMES A DAY AS NEEDED
  13. CARAFATE [Concomitant]
     Indication: MOUTH ULCERATION
     Dosage: 1GM/10ML
  14. HUMIRA [Suspect]
     Route: 058
     Dates: end: 20100601
  15. HYDROCORTISONE [Concomitant]
     Indication: PRODUCT USED FOR UNKNOWN INDICATION
     Dosage: 5MG X 2 IN AM; 5 MG X 1/2 @HS
  16. FERROUS GLUCONATE [Concomitant]
     Indication: PRODUCT USED FOR UNKNOWN INDICATION

REACTIONS (16)
  - RETCHING [None]
  - CYST [None]
  - FEELING COLD [None]
  - NAUSEA [None]
  - HOT FLUSH [None]
  - FEELING ABNORMAL [None]
  - FALL [None]
  - HYPOPHAGIA [None]
  - UTERINE DILATION AND CURETTAGE [None]
  - FATIGUE [None]
  - SLUGGISHNESS [None]
  - INJECTION SITE PAIN [None]
  - CROHN'S DISEASE [None]
  - PAIN [None]
  - ABDOMINAL PAIN [None]
  - MOUTH ULCERATION [None]
